FAERS Safety Report 24198393 (Version 1)
Quarter: 2024Q3

REPORT INFORMATION
  Report Type: Spontaneous
  Country: US (occurrence: US)
  Receive Date: 20240812
  Receipt Date: 20240812
  Transmission Date: 20241017
  Serious: No
  Sender: ABBVIE
  Company Number: US-ABBVIE-5872306

PATIENT
  Sex: Female

DRUGS (1)
  1. BOTOX COSMETIC [Suspect]
     Active Substance: ONABOTULINUMTOXINA
     Indication: Skin wrinkling
     Dosage: TIME INTERVAL: AS NECESSARY
     Route: 065
     Dates: start: 20240725, end: 20240725

REACTIONS (3)
  - Taste disorder [Recovered/Resolved]
  - Hypoaesthesia oral [Recovered/Resolved]
  - Dysarthria [Recovered/Resolved]

NARRATIVE: CASE EVENT DATE: 20240725
